FAERS Safety Report 8031067-X (Version None)
Quarter: 2012Q1

REPORT INFORMATION
  Report Type: 
  Country: None (occurrence: None)
  Receive Date: 20120109
  Receipt Date: 20120103
  Transmission Date: 20120608
  Serious: Yes (Other)
  Sender: FDA-Public Use
  Company Number: DE-PFIZER INC-2012001948

PATIENT
  Sex: Male

DRUGS (3)
  1. SIMVASTATIN [Suspect]
     Dosage: 40 MG, UNK
     Dates: start: 20110801
  2. TEMSIROLIMUS [Suspect]
     Indication: RENAL CELL CARCINOMA
     Dosage: UNK
     Dates: start: 20100501
  3. SIMVASTATIN [Suspect]
     Dosage: 10 MG, UNK
     Dates: start: 20100510

REACTIONS (5)
  - BLOOD CHOLESTEROL INCREASED [None]
  - MYALGIA [None]
  - BLOOD TRIGLYCERIDES INCREASED [None]
  - MYOCARDIAL INFARCTION [None]
  - DRUG INEFFECTIVE [None]
